FAERS Safety Report 19208401 (Version 6)
Quarter: 2022Q3

REPORT INFORMATION
  Report Type: Spontaneous
  Country: DE (occurrence: DE)
  Receive Date: 20210503
  Receipt Date: 20220804
  Transmission Date: 20221027
  Serious: Yes (Hospitalization, Other)
  Sender: FDA-Public Use
  Company Number: DE-JNJFOC-20210445841

PATIENT
  Sex: Female

DRUGS (10)
  1. SPRAVATO [Suspect]
     Active Substance: ESKETAMINE
     Indication: Depression
  2. SPRAVATO [Suspect]
     Active Substance: ESKETAMINE
  3. SPRAVATO [Suspect]
     Active Substance: ESKETAMINE
  4. QUETIAPINE [Concomitant]
     Active Substance: QUETIAPINE
  5. VORTIOXETINE [Concomitant]
     Active Substance: VORTIOXETINE
  6. BUPROPION HYDROCHLORIDE [Concomitant]
     Active Substance: BUPROPION HYDROCHLORIDE
  7. LAMICTAL [Concomitant]
     Active Substance: LAMOTRIGINE
  8. BRINTELLIX [Concomitant]
     Active Substance: VORTIOXETINE HYDROBROMIDE
  9. TAVOR (LORAZEPAM) [Concomitant]
     Active Substance: LORAZEPAM
  10. NALOXONE HYDROCHLORIDE\OXYCODONE HYDROCHLORIDE [Concomitant]
     Active Substance: NALOXONE HYDROCHLORIDE\OXYCODONE HYDROCHLORIDE
     Route: 065

REACTIONS (8)
  - Knee operation [Unknown]
  - Listless [Recovering/Resolving]
  - Depression [Unknown]
  - Suicidal ideation [Unknown]
  - Dissociation [Unknown]
  - Blood pressure increased [Unknown]
  - Therapeutic product effect decreased [Unknown]
  - Therapeutic response unexpected [Unknown]
